FAERS Safety Report 8853205 (Version 2)
Quarter: 2013Q1

REPORT INFORMATION
  Report Type: Spontaneous
  Country: US (occurrence: US)
  Receive Date: 20121022
  Receipt Date: 20130326
  Transmission Date: 20140127
  Serious: Yes (Hospitalization, Other)
  Sender: FDA-Public Use
  Company Number: US-PFIZER INC-2012259127

PATIENT
  Age: 41 Year
  Sex: Female

DRUGS (4)
  1. CHANTIX [Suspect]
     Indication: SMOKING CESSATION THERAPY
     Dosage: 1 MG, UNK
     Dates: start: 20070615, end: 20071031
  2. LEVOTHYROXINE [Concomitant]
     Indication: HYPOTHYROIDISM
     Dosage: UNK
     Dates: start: 1983
  3. PROTON PUMP INHIBITORS [Concomitant]
     Indication: GASTROOESOPHAGEAL REFLUX DISEASE
     Dosage: UNK
     Dates: start: 1996
  4. EFFEXOR [Concomitant]
     Indication: ANXIETY
     Dosage: UNK
     Dates: start: 2002

REACTIONS (13)
  - Intentional overdose [Unknown]
  - Suicide attempt [Unknown]
  - Suicide attempt [Recovered/Resolved]
  - Major depression [Unknown]
  - Depression [Recovered/Resolved]
  - Agitation [Unknown]
  - Abnormal behaviour [Unknown]
  - Mood altered [Unknown]
  - Mood swings [Unknown]
  - Anxiety [Not Recovered/Not Resolved]
  - Abnormal dreams [Unknown]
  - Aggression [Recovered/Resolved]
  - Thinking abnormal [Unknown]
